FAERS Safety Report 7594859-7 (Version None)
Quarter: 2011Q2

REPORT INFORMATION
  Report Type: 
  Country: None (occurrence: None)
  Receive Date: 20110615
  Receipt Date: 20110111
  Transmission Date: 20111010
  Serious: Yes (Hospitalization)
  Sender: FDA-Public Use
  Company Number: WAES 1101USA01125

PATIENT
  Age: 82 Year
  Sex: Male

DRUGS (3)
  1. PERCOCET [Concomitant]
  2. COZAAR [Suspect]
     Indication: HYPERTENSION
     Dosage: 50 MG/DAILY/PO
     Route: 048
     Dates: start: 20101201
  3. LORAZEPAM [Concomitant]

REACTIONS (1)
  - MALAISE [None]
